FAERS Safety Report 25473387 (Version 2)
Quarter: 2025Q2

REPORT INFORMATION
  Report Type: Spontaneous
  Country: US (occurrence: US)
  Receive Date: 20250624
  Receipt Date: 20250624
  Transmission Date: 20250716
  Serious: Yes (Other)
  Sender: GILEAD
  Company Number: US-GILEAD-2025-0714943

PATIENT
  Sex: Male
  Weight: 64.853 kg

DRUGS (1)
  1. BIKTARVY [Suspect]
     Active Substance: BICTEGRAVIR SODIUM\EMTRICITABINE\TENOFOVIR ALAFENAMIDE FUMARATE
     Indication: Product used for unknown indication
     Route: 065
     Dates: start: 2020

REACTIONS (5)
  - Cognitive disorder [Unknown]
  - Mental disorder [Unknown]
  - Memory impairment [Unknown]
  - Inappropriate schedule of product administration [Not Recovered/Not Resolved]
  - Treatment noncompliance [Unknown]

NARRATIVE: CASE EVENT DATE: 20200101
